FAERS Safety Report 5764642-3 (Version None)
Quarter: 2008Q2

REPORT INFORMATION
  Report Type: 
  Country: None (occurrence: None)
  Receive Date: 20080611
  Receipt Date: 20080505
  Transmission Date: 20081010
  Serious: No
  Sender: FDA-Public Use
  Company Number: US-BAYER-200815407NA

PATIENT

DRUGS (1)
  1. ULTRAVIST (PHARMACY BULK) [Suspect]
     Indication: DRUG USE FOR UNKNOWN INDICATION
     Dates: start: 20080101, end: 20080101

REACTIONS (5)
  - DYSPHONIA [None]
  - EYE PRURITUS [None]
  - LACRIMATION INCREASED [None]
  - NASAL CONGESTION [None]
  - THROAT IRRITATION [None]
